FAERS Safety Report 6738741-3 (Version None)
Quarter: 2010Q2

REPORT INFORMATION
  Report Type: 
  Country: None (occurrence: None)
  Receive Date: 20100524
  Receipt Date: 20100519
  Transmission Date: 20101027
  Serious: Yes (Death, Hospitalization)
  Sender: FDA-Public Use
  Company Number: US-GILEAD-2010-0028099

PATIENT
  Sex: Female
  Weight: 70 kg

DRUGS (10)
  1. LETAIRIS [Suspect]
     Indication: PULMONARY ARTERIAL HYPERTENSION
     Route: 048
     Dates: start: 20080110
  2. FLOLAN [Concomitant]
  3. LASIX [Concomitant]
  4. COMBIVENT [Concomitant]
  5. CYMBALTA [Concomitant]
  6. PROTONIX [Concomitant]
  7. TEMAZEPAM [Concomitant]
  8. PHENERGAN [Concomitant]
  9. FLEXERIL [Concomitant]
  10. K-DUR [Concomitant]

REACTIONS (3)
  - DYSPNOEA [None]
  - PULMONARY ARTERIAL HYPERTENSION [None]
  - SCLERODERMA [None]
